FAERS Safety Report 10888100 (Version 1)
Quarter: 2015Q1

REPORT INFORMATION
  Report Type: Spontaneous
  Country: US (occurrence: US)
  Receive Date: 20150304
  Receipt Date: 20150304
  Transmission Date: 20150721
  Serious: No
  Sender: FDA-Public Use
  Company Number: US-AMGEN-USASP2014028848

PATIENT
  Age: 60 Year
  Sex: Male
  Weight: 126.8 kg

DRUGS (3)
  1. FLOMAX [Concomitant]
     Active Substance: TAMSULOSIN HYDROCHLORIDE
     Indication: PSORIATIC ARTHROPATHY
     Dosage: 0.4 MG, QD
     Route: 048
     Dates: start: 20140405
  2. ENBREL [Suspect]
     Active Substance: ETANERCEPT
     Indication: PSORIATIC ARTHROPATHY
     Dosage: 50 MG, QWK
     Route: 058
     Dates: start: 201312, end: 20140428
  3. COLCRYS [Concomitant]
     Active Substance: COLCHICINE
     Indication: PSORIATIC ARTHROPATHY
     Dosage: 0.6 UNK, UNK
     Route: 048
     Dates: start: 20140405

REACTIONS (5)
  - Arthralgia [Recovered/Resolved]
  - Swelling [Recovered/Resolved]
  - Fatigue [Unknown]
  - Psoriasis [Not Recovered/Not Resolved]
  - Toothache [Recovered/Resolved]

NARRATIVE: CASE EVENT DATE: 20140106
